FAERS Safety Report 5566895-3 (Version None)
Quarter: 2007Q4

REPORT INFORMATION
  Report Type: 
  Country: None (occurrence: None)
  Receive Date: 20071219
  Receipt Date: 20070307
  Transmission Date: 20080405
  Serious: No
  Sender: FDA-Public Use
  Company Number: US-BRISTOL-MYERS SQUIBB COMPANY-13606090

PATIENT
  Age: 58 Year
  Sex: Female

DRUGS (1)
  1. PRAVACHOL [Suspect]
     Indication: HYPERLIPIDAEMIA
     Route: 048
     Dates: start: 20050815, end: 20060830

REACTIONS (18)
  - ARRHYTHMIA [None]
  - ARTHRALGIA [None]
  - BLOOD CREATININE INCREASED [None]
  - BONE PAIN [None]
  - BRAIN OEDEMA [None]
  - DENTAL CARIES [None]
  - EYE PAIN [None]
  - FATIGUE [None]
  - HEADACHE [None]
  - INTERVERTEBRAL DISC DEGENERATION [None]
  - MEMORY IMPAIRMENT [None]
  - MUSCLE ATROPHY [None]
  - MUSCLE SPASMS [None]
  - PARAESTHESIA [None]
  - SENSORY LOSS [None]
  - SKIN DISCOLOURATION [None]
  - SKIN LESION [None]
  - WEIGHT INCREASED [None]
